FAERS Safety Report 6927652-6 (Version None)
Quarter: 2010Q3

REPORT INFORMATION
  Report Type: 
  Country: None (occurrence: None)
  Receive Date: 20100817
  Receipt Date: 20100806
  Transmission Date: 20110219
  Serious: Yes (Other)
  Sender: FDA-Public Use
  Company Number: PK-NOVOPROD-312787

PATIENT
  Age: 68 Year
  Sex: Male
  Weight: 92.5 kg

DRUGS (6)
  1. LEVEMIR [Suspect]
     Indication: BLOOD GLUCOSE ABNORMAL
     Dosage: 14 U, QD
     Route: 058
     Dates: start: 20100723, end: 20100805
  2. GLIMEPIRID [Concomitant]
     Dosage: 6 MG, QD
     Route: 048
     Dates: start: 20070212
  3. METFORMIN [Concomitant]
     Dosage: 3 G, QD
     Route: 048
     Dates: start: 20060101
  4. ATENOLOL [Concomitant]
     Dosage: 100 MG, QD
     Route: 048
     Dates: start: 19760101
  5. GEMFIBROZIL [Concomitant]
     Dosage: 600 MG, QD
     Route: 048
     Dates: start: 20060724
  6. ATORVASTATIN [Concomitant]
     Dosage: 10 MG, QD
     Route: 048
     Dates: start: 20090423

REACTIONS (2)
  - APPLICATION SITE ERYTHEMA [None]
  - INJECTION SITE PAIN [None]
